FAERS Safety Report 4902479-5 (Version None)
Quarter: 2006Q1

REPORT INFORMATION
  Report Type: 
  Country: None (occurrence: None)
  Receive Date: 20060202
  Receipt Date: 20060130
  Transmission Date: 20060701
  Serious: Yes (Other)
  Sender: FDA-Public Use
  Company Number: CHWYE350131JAN06

PATIENT
  Age: 62 Year
  Sex: Female

DRUGS (3)
  1. EFFEXOR [Suspect]
     Indication: DEPRESSION
     Dosage: 150 MG 1X PER 1 DAY, ORAL; SEE IMAGE
     Route: 048
     Dates: end: 20050501
  2. EFFEXOR [Suspect]
     Indication: DEPRESSION
     Dosage: 150 MG 1X PER 1 DAY, ORAL; SEE IMAGE
     Route: 048
     Dates: start: 20051201
  3. SURMONTIL [Concomitant]

REACTIONS (2)
  - FLATULENCE [None]
  - HYPOSMIA [None]
